FAERS Safety Report 12251486 (Version 2)
Quarter: 2016Q2

REPORT INFORMATION
  Report Type: Spontaneous
  Country: US (occurrence: US)
  Receive Date: 20160410
  Receipt Date: 20160426
  Transmission Date: 20160815
  Serious: Yes (Other)
  Sender: FDA-Public Use
  Company Number: US-JNJFOC-20160318706

PATIENT
  Age: 28 Year
  Sex: Male
  Weight: 88.45 kg

DRUGS (6)
  1. INVEGA [Suspect]
     Active Substance: PALIPERIDONE
     Indication: ANXIETY
     Route: 048
     Dates: start: 20070622, end: 20071231
  2. KLONOPIN [Concomitant]
     Active Substance: CLONAZEPAM
     Indication: ANXIETY
     Route: 065
  3. INVEGA [Suspect]
     Active Substance: PALIPERIDONE
     Indication: SCHIZOPHRENIA
     Route: 048
     Dates: start: 20070622, end: 20071231
  4. ZOLPIDEM [Concomitant]
     Active Substance: ZOLPIDEM\ZOLPIDEM TARTRATE
     Indication: SLEEP DISORDER THERAPY
     Route: 065
  5. GABAPENTIN. [Concomitant]
     Active Substance: GABAPENTIN
     Indication: DRUG THERAPY
     Route: 065
  6. ZYPREXA [Concomitant]
     Active Substance: OLANZAPINE
     Indication: SCHIZOPHRENIA
     Route: 065

REACTIONS (7)
  - Adverse drug reaction [Unknown]
  - Kidney infection [Not Recovered/Not Resolved]
  - Amnesia [Not Recovered/Not Resolved]
  - Chest pain [Not Recovered/Not Resolved]
  - Seizure [Not Recovered/Not Resolved]
  - Dementia [Not Recovered/Not Resolved]
  - Pain [Not Recovered/Not Resolved]

NARRATIVE: CASE EVENT DATE: 2007
